FAERS Safety Report 13825110 (Version 1)
Quarter: 2017Q3

REPORT INFORMATION
  Report Type: Spontaneous
  Country: IT (occurrence: IT)
  Receive Date: 20170802
  Receipt Date: 20170802
  Transmission Date: 20171127
  Serious: Yes (Hospitalization, Other)
  Sender: FDA-Public Use
  Company Number: PHHY2017IT111307

PATIENT
  Age: 29 Year
  Sex: Male

DRUGS (7)
  1. TALAVIR [Concomitant]
     Active Substance: VALACYCLOVIR HYDROCHLORIDE
     Indication: OPHTHALMIC HERPES SIMPLEX
     Dosage: 500 MG, UNK
     Route: 048
  2. FOSCARNET [Suspect]
     Active Substance: FOSCARNET
     Indication: GASTRITIS HERPES
  3. GANCICLOVIR. [Concomitant]
     Active Substance: GANCICLOVIR
     Indication: GASTRITIS HERPES
  4. COSENTYX [Suspect]
     Active Substance: SECUKINUMAB
     Indication: PSORIATIC ARTHROPATHY
     Dosage: 300 MG, QMO
     Route: 058
     Dates: start: 20170116, end: 20170307
  5. FOSCARNET [Suspect]
     Active Substance: FOSCARNET
     Indication: OPHTHALMIC HERPES SIMPLEX
     Route: 065
  6. GANCICLOVIR. [Concomitant]
     Active Substance: GANCICLOVIR
     Indication: OPHTHALMIC HERPES SIMPLEX
     Route: 065
  7. SANDIMMUN [Concomitant]
     Active Substance: CYCLOSPORINE
     Indication: PSORIATIC ARTHROPATHY
     Dosage: 150 MG, UNK
     Route: 048

REACTIONS (7)
  - Dysphagia [Unknown]
  - Renal impairment [Unknown]
  - Pyrexia [Unknown]
  - Mouth ulceration [Unknown]
  - Gastritis herpes [Recovered/Resolved]
  - Stomatitis [Unknown]
  - Diarrhoea [Unknown]

NARRATIVE: CASE EVENT DATE: 20170301
